FAERS Safety Report 10486032 (Version 1)
Quarter: 2014Q3

REPORT INFORMATION
  Report Type: Spontaneous
  Country: US (occurrence: None)
  Receive Date: 20140930
  Receipt Date: 20140930
  Transmission Date: 20150326
  Serious: Yes (Hospitalization)
  Sender: FDA-Public Use
  Company Number: None

PATIENT
  Age: 80 Year
  Sex: Male
  Weight: 71.2 kg

DRUGS (9)
  1. ALLOPURINOL. [Concomitant]
     Active Substance: ALLOPURINOL
  2. CALCIUM VITAMIN D [Concomitant]
     Active Substance: CALCIUM\VITAMIN D
  3. DOCUSATE SODIUM. [Concomitant]
     Active Substance: DOCUSATE SODIUM
  4. HYDROCODONE [Concomitant]
     Active Substance: HYDROCODONE
  5. NORTRIPTYLINE [Concomitant]
     Active Substance: NORTRIPTYLINE
  6. RUXOLITINIB [Suspect]
     Active Substance: RUXOLITINIB
     Indication: CHRONIC MYELOID LEUKAEMIA
     Route: 048
     Dates: start: 20140821, end: 20140923
  7. OMEPRAZOLE. [Concomitant]
     Active Substance: OMEPRAZOLE
  8. THIAMINE HCL [Concomitant]
  9. MULTIVITAMINS-MINERALS-LUTEIN [Concomitant]

REACTIONS (4)
  - Haemorrhage [None]
  - Ecchymosis [None]
  - Haemorrhagic diathesis [None]
  - Peripheral swelling [None]

NARRATIVE: CASE EVENT DATE: 20140923
